FAERS Safety Report 11910085 (Version 1)
Quarter: 2016Q1

REPORT INFORMATION
  Report Type: Spontaneous
  Country: US (occurrence: None)
  Receive Date: 20160111
  Receipt Date: 20160111
  Transmission Date: 20160526
  Serious: Yes (Other)
  Sender: FDA-Public Use
  Company Number: None

PATIENT
  Sex: Male

DRUGS (1)
  1. NERVE PAIN PLUS [Suspect]
     Active Substance: HOMEOPATHICS

REACTIONS (4)
  - Dizziness [None]
  - Altered state of consciousness [None]
  - Loss of consciousness [None]
  - Somnolence [None]
